FAERS Safety Report 15601726 (Version 3)
Quarter: 2018Q4

REPORT INFORMATION
  Report Type: Report from Study
  Country: GB (occurrence: GB)
  Receive Date: 20181109
  Receipt Date: 20181221
  Transmission Date: 20190205
  Serious: Yes (Other)
  Sender: FDA-Public Use
  Company Number: PHHY2018GB150682

PATIENT
  Sex: Female

DRUGS (2)
  1. COSENTYX [Suspect]
     Active Substance: SECUKINUMAB
     Dosage: 300 MG, QMO
     Route: 058
  2. COSENTYX [Suspect]
     Active Substance: SECUKINUMAB
     Indication: PSORIATIC ARTHROPATHY
     Dosage: 300 MG, QW (FOR 5 WEEKS)
     Route: 058
     Dates: start: 20181018

REACTIONS (5)
  - Influenza like illness [Recovered/Resolved]
  - Nausea [Recovered/Resolved]
  - Malaise [Unknown]
  - Fatigue [Unknown]
  - Diarrhoea [Recovered/Resolved]
